FAERS Safety Report 17527006 (Version 1)
Quarter: 2020Q1

REPORT INFORMATION
  Report Type: Spontaneous
  Country: US (occurrence: US)
  Receive Date: 20200311
  Receipt Date: 20200311
  Transmission Date: 20200409
  Serious: No
  Sender: FDA-Public Use
  Company Number: US-TEVA-2020-US-1198153

PATIENT
  Sex: Female

DRUGS (14)
  1. LEXAPRO [Concomitant]
     Active Substance: ESCITALOPRAM OXALATE
  2. LUTEIN [Concomitant]
     Active Substance: LUTEIN
  3. PRILOSEC [Concomitant]
     Active Substance: OMEPRAZOLE MAGNESIUM
  4. AMLODIPINE [Concomitant]
     Active Substance: AMLODIPINE BESYLATE
  5. FOLIC ACID. [Concomitant]
     Active Substance: FOLIC ACID
  6. VESICARE [Concomitant]
     Active Substance: SOLIFENACIN SUCCINATE
  7. ZINC. [Concomitant]
     Active Substance: ZINC
  8. COPAXONE [Suspect]
     Active Substance: GLATIRAMER ACETATE
     Indication: MULTIPLE SCLEROSIS
     Dosage: 3 TIMES PER WEEK
     Route: 058
     Dates: start: 20180306
  9. COQ 10 [Concomitant]
     Active Substance: UBIDECARENONE
  10. GABAPENTIN. [Concomitant]
     Active Substance: GABAPENTIN
  11. TIZANIDINE. [Concomitant]
     Active Substance: TIZANIDINE
  12. DALFAMPRIDINE. [Concomitant]
     Active Substance: DALFAMPRIDINE
  13. VITAMIN D3 [Concomitant]
     Active Substance: CHOLECALCIFEROL
  14. VITAMIN B12 [Concomitant]
     Active Substance: CYANOCOBALAMIN

REACTIONS (2)
  - Fatigue [Not Recovered/Not Resolved]
  - Depression [Recovering/Resolving]
